FAERS Safety Report 11011459 (Version 2)
Quarter: 2015Q2

REPORT INFORMATION
  Report Type: Spontaneous
  Country: US (occurrence: US)
  Receive Date: 20150410
  Receipt Date: 20150525
  Transmission Date: 20150821
  Serious: Yes (Other)
  Sender: FDA-Public Use
  Company Number: US-JNJFOC-20130105187

PATIENT
  Age: 45 Year
  Sex: Female

DRUGS (1)
  1. REMICADE [Suspect]
     Active Substance: INFLIXIMAB
     Indication: PSORIATIC ARTHROPATHY
     Dosage: FREQUENCY OF ADMINISTRATION: 0, 2 AND 6 WEEK INDUCTION DOSES
     Route: 042

REACTIONS (2)
  - Autoimmune hepatitis [Recovering/Resolving]
  - Hepatic failure [Recovering/Resolving]
